FAERS Safety Report 22355193 (Version 1)
Quarter: 2023Q2

REPORT INFORMATION
  Report Type: Spontaneous
  Country: US (occurrence: US)
  Receive Date: 20230523
  Receipt Date: 20230523
  Transmission Date: 20230721
  Serious: No
  Sender: FDA-Public Use
  Company Number: US-GLENMARK PHARMACEUTICALS-2022GMK074059

PATIENT

DRUGS (1)
  1. CLOBETASOL PROPIONATE [Suspect]
     Active Substance: CLOBETASOL PROPIONATE
     Indication: Seborrhoea
     Dosage: TO APPLY IT SEVERAL TIMES A DAY FOR UP TO 2 TO 3 WEEKS
     Route: 061

REACTIONS (3)
  - Erythema [Unknown]
  - Inappropriate schedule of product administration [Unknown]
  - Pruritus [Unknown]
